FAERS Safety Report 12357531 (Version 1)
Quarter: 2016Q2

REPORT INFORMATION
  Report Type: Spontaneous
  Country: FR (occurrence: FR)
  Receive Date: 20160512
  Receipt Date: 20160512
  Transmission Date: 20160815
  Serious: Yes (Hospitalization)
  Sender: FDA-Public Use
  Company Number: FR-ROCHE-1755750

PATIENT
  Age: 79 Year
  Sex: Male

DRUGS (6)
  1. CORTANCYL [Suspect]
     Active Substance: PREDNISONE
     Indication: HYPERCALCAEMIA
     Route: 048
  2. DUPHALAC (FRANCE) [Concomitant]
  3. MABTHERA [Suspect]
     Active Substance: RITUXIMAB
     Indication: HYPERCALCAEMIA
     Route: 042
     Dates: start: 20160315, end: 20160315
  4. METHYLPREDNISOLONE. [Suspect]
     Active Substance: METHYLPREDNISOLONE
     Indication: HYPERCALCAEMIA
     Route: 040
     Dates: start: 20160312, end: 20160314
  5. BISOCE [Concomitant]
     Active Substance: BISOPROLOL
     Route: 065
  6. KARDEGIC [Concomitant]
     Active Substance: ASPIRIN LYSINE
     Route: 065

REACTIONS (3)
  - Hypoxia [Recovered/Resolved]
  - Pneumonia respiratory syncytial viral [Recovered/Resolved]
  - Inflammation [Recovered/Resolved]

NARRATIVE: CASE EVENT DATE: 20160316
